FAERS Safety Report 19818627 (Version 1)
Quarter: 2021Q3

REPORT INFORMATION
  Report Type: Spontaneous
  Country: US (occurrence: US)
  Receive Date: 20210912
  Receipt Date: 20210912
  Transmission Date: 20211014
  Serious: No
  Sender: FDA-Public Use
  Company Number: US-009507513-2109USA000414

PATIENT
  Age: 11 Year
  Sex: Male

DRUGS (2)
  1. PAZOPANIB [Concomitant]
     Active Substance: PAZOPANIB
     Indication: ALVEOLAR RHABDOMYOSARCOMA
     Dosage: UNK, DAILY (QD)
     Route: 048
  2. TEMODAR [Suspect]
     Active Substance: TEMOZOLOMIDE
     Indication: ALVEOLAR RHABDOMYOSARCOMA
     Dosage: UNK, 5?DAY COURSE
     Route: 048

REACTIONS (2)
  - Product use in unapproved indication [Unknown]
  - Product administered to patient of inappropriate age [Unknown]
